FAERS Safety Report 7409996-7 (Version None)
Quarter: 2011Q2

REPORT INFORMATION
  Report Type: 
  Country: None (occurrence: None)
  Receive Date: 20110412
  Receipt Date: 20110404
  Transmission Date: 20111010
  Serious: Yes (Hospitalization)
  Sender: FDA-Public Use
  Company Number: GB-TEVA-274872ISR

PATIENT
  Age: 50 Year
  Sex: Female

DRUGS (5)
  1. PHENYTOIN [Suspect]
  2. PHENOBARBITAL SRT [Interacting]
  3. FLUCLOXACILLIN [Interacting]
     Route: 042
  4. PARACETAMOL [Interacting]
     Dosage: 4 GRAM;
  5. CARBAMAZEPINE [Interacting]

REACTIONS (3)
  - DRUG INTERACTION [None]
  - SEPSIS [None]
  - METABOLIC ACIDOSIS [None]
